FAERS Safety Report 7725872-4 (Version None)
Quarter: 2011Q3

REPORT INFORMATION
  Report Type: 
  Country: None (occurrence: None)
  Receive Date: 20110830
  Receipt Date: 20110812
  Transmission Date: 20111222
  Serious: Yes (Other)
  Sender: FDA-Public Use
  Company Number: JPI-P-016578

PATIENT
  Age: 81 Year
  Sex: Female
  Weight: 79.3795 kg

DRUGS (13)
  1. DIGOXIN [Suspect]
     Indication: ATRIAL FIBRILLATION
     Dosage: (1 IN 1 D)
     Dates: start: 20100801, end: 20110808
  2. METFORMIN HCL [Concomitant]
  3. XYREM [Suspect]
     Indication: INITIAL INSOMNIA
     Dosage: (3 GM FIRST DOSE/ 1.5 GM SECOND DOSE), ORAL
     Route: 048
     Dates: start: 20050420
  4. XYREM [Suspect]
     Indication: SLEEP APNOEA SYNDROME
     Dosage: (3 GM FIRST DOSE/ 1.5 GM SECOND DOSE), ORAL
     Route: 048
     Dates: start: 20050420
  5. FUROSEMIDE [Suspect]
     Indication: OEDEMA PERIPHERAL
     Dosage: 10 MG [10 MG, 1 IN 1 D], ORAL
     Route: 048
     Dates: start: 19600101, end: 20110808
  6. LEVOTHYROXINE SODIUM [Concomitant]
  7. CYCLOSPORINE [Concomitant]
  8. CLOPIDOGREL BISULFATE [Concomitant]
  9. MEMANTINE HYDROCHLORIDE [Concomitant]
  10. CETIRIZINE HCL [Concomitant]
  11. IBANDRONATE SODIUM [Concomitant]
  12. DARIFENACIN [Concomitant]
  13. METOPROLOL SUCCINATE [Concomitant]

REACTIONS (2)
  - LIVER FUNCTION TEST ABNORMAL [None]
  - RENAL FAILURE [None]
